FAERS Safety Report 25598108 (Version 1)
Quarter: 2025Q3

REPORT INFORMATION
  Report Type: Spontaneous
  Country: PK (occurrence: PK)
  Receive Date: 20250723
  Receipt Date: 20250723
  Transmission Date: 20251021
  Serious: Yes (Death, Other)
  Sender: B. BRAUN MEDICAL INC.
  Company Number: PK-B. Braun Medical Inc.-PK-BBM-202502887

PATIENT
  Age: 86 Year
  Sex: Male

DRUGS (3)
  1. ACETAMINOPHEN [Suspect]
     Active Substance: ACETAMINOPHEN
     Indication: Pain
  2. PREGABALIN [Suspect]
     Active Substance: PREGABALIN
  3. TRAMADOL [Suspect]
     Active Substance: TRAMADOL

REACTIONS (1)
  - Intestinal obstruction [Fatal]
